FAERS Safety Report 15490017 (Version 2)
Quarter: 2019Q2

REPORT INFORMATION
  Report Type: Report from Study
  Country: ES (occurrence: ES)
  Receive Date: 20181011
  Receipt Date: 20190612
  Transmission Date: 20190711
  Serious: Yes (Other)
  Sender: FDA-Public Use
  Company Number: ES-SA-2018SA211360

PATIENT
  Age: 55 Year
  Sex: Female
  Weight: 52 kg

DRUGS (4)
  1. TERIFLUNOMIDE. [Suspect]
     Active Substance: TERIFLUNOMIDE
     Indication: RELAPSING-REMITTING MULTIPLE SCLEROSIS
     Dosage: UNK
     Dates: start: 20161215
  2. FAMPRIDINE [Concomitant]
     Active Substance: DALFAMPRIDINE
     Indication: GAIT DISTURBANCE
     Dosage: 10 UNK, Q12H
     Dates: start: 20151201, end: 20170421
  3. SERTRALINE [Concomitant]
     Active Substance: SERTRALINE HYDROCHLORIDE
     Indication: DEPRESSION
     Dosage: 100 MG, QD
     Dates: start: 20170310, end: 20170727
  4. AMANTADIN [AMANTADINE] [Concomitant]
     Indication: FATIGUE MANAGEMENT
     Dosage: 100 UNK, TID
     Dates: start: 20170421, end: 20170720

REACTIONS (1)
  - Leukopenia [Recovered/Resolved]

NARRATIVE: CASE EVENT DATE: 20170117
